FAERS Safety Report 7408339-2 (Version None)
Quarter: 2011Q2

REPORT INFORMATION
  Report Type: 
  Country: None (occurrence: None)
  Receive Date: 20110412
  Receipt Date: 20110404
  Transmission Date: 20111010
  Serious: Yes (Hospitalization, Other)
  Sender: FDA-Public Use
  Company Number: US-JNJFOC-20100805218

PATIENT
  Sex: Female

DRUGS (1)
  1. LEVAQUIN [Suspect]
     Indication: PNEUMONIA
     Route: 048

REACTIONS (8)
  - SYNCOPE [None]
  - MUSCLE SPASMS [None]
  - HYPERSENSITIVITY [None]
  - ROTATOR CUFF SYNDROME [None]
  - RESTLESS LEGS SYNDROME [None]
  - LIGAMENT RUPTURE [None]
  - MUSCLE RUPTURE [None]
  - INSOMNIA [None]
